FAERS Safety Report 11552792 (Version 2)
Quarter: 2015Q4

REPORT INFORMATION
  Report Type: Report from Study
  Country: NL (occurrence: NL)
  Receive Date: 20150925
  Receipt Date: 20151109
  Transmission Date: 20160304
  Serious: Yes (Hospitalization)
  Sender: FDA-Public Use
  Company Number: NL-BIOGENIDEC-2015BI129405

PATIENT
  Age: 53 Year
  Sex: Female

DRUGS (2)
  1. TECFIDERA [Suspect]
     Active Substance: DIMETHYL FUMARATE
     Indication: RELAPSING-REMITTING MULTIPLE SCLEROSIS
     Route: 048
     Dates: start: 20150305, end: 20150311
  2. TECFIDERA [Suspect]
     Active Substance: DIMETHYL FUMARATE
     Indication: RELAPSING-REMITTING MULTIPLE SCLEROSIS
     Route: 048
     Dates: start: 20150312

REACTIONS (5)
  - Confusional state [Not Recovered/Not Resolved]
  - Apathy [Not Recovered/Not Resolved]
  - Anxiety [Unknown]
  - Obsessive-compulsive disorder [Not Recovered/Not Resolved]
  - Dysphagia [Unknown]

NARRATIVE: CASE EVENT DATE: 20150907
